FAERS Safety Report 10477297 (Version 2)
Quarter: 2014Q4

REPORT INFORMATION
  Report Type: Spontaneous
  Country: FR (occurrence: FR)
  Receive Date: 20140926
  Receipt Date: 20141219
  Transmission Date: 20150528
  Serious: Yes (Hospitalization, Other)
  Sender: FDA-Public Use
  Company Number: FR-ASTRAZENECA-2014SE70431

PATIENT
  Age: 31592 Day
  Sex: Male

DRUGS (5)
  1. LOVENOX [Concomitant]
     Active Substance: ENOXAPARIN SODIUM
     Route: 065
     Dates: start: 20140626, end: 20140902
  2. XEROQUEL [Suspect]
     Active Substance: QUETIAPINE FUMARATE
     Dosage: DOSE PROGRESSIVELY INCREASED TO 300 MG PER DAY
     Route: 048
     Dates: start: 20140626, end: 20140801
  3. XEROQUEL [Interacting]
     Active Substance: QUETIAPINE FUMARATE
     Route: 048
     Dates: start: 20140802, end: 20140827
  4. AUGMENTIN [Interacting]
     Active Substance: AMOXICILLIN\CLAVULANATE POTASSIUM
     Route: 048
     Dates: start: 20140822, end: 20140826
  5. XEROQUEL [Interacting]
     Active Substance: QUETIAPINE FUMARATE
     Dosage: LOWER DOSES
     Route: 048
     Dates: start: 201409, end: 201409

REACTIONS (14)
  - Hyperthermia [Recovered/Resolved]
  - Confusional state [Unknown]
  - Somnolence [Recovered/Resolved]
  - Hyperhidrosis [Recovered/Resolved]
  - Labile blood pressure [Recovered/Resolved]
  - Neuroleptic malignant syndrome [Unknown]
  - Fall [Recovered/Resolved]
  - Drug interaction [Recovered/Resolved]
  - Hypertonia [Recovered/Resolved]
  - Asthenia [Unknown]
  - Bronchitis [Unknown]
  - Tremor [Unknown]
  - General physical health deterioration [Unknown]
  - Hypotension [Unknown]

NARRATIVE: CASE EVENT DATE: 20140824
